FAERS Safety Report 5373411-8 (Version None)
Quarter: 2007Q2

REPORT INFORMATION
  Report Type: 
  Country: None (occurrence: None)
  Receive Date: 20070626
  Receipt Date: 20070626
  Transmission Date: 20071010
  Serious: No
  Sender: FDA-Public Use
  Company Number: None

PATIENT
  Sex: Female
  Weight: 57.8 kg

DRUGS (1)
  1. SYMBICORT [Suspect]
     Dosage: 2 PUFFS BID INHALED
     Route: 055
     Dates: start: 20070623, end: 20070624

REACTIONS (3)
  - CHEST DISCOMFORT [None]
  - DYSPNOEA [None]
  - OXYGEN SATURATION DECREASED [None]
